FAERS Safety Report 4785627-X (Version None)
Quarter: 2005Q3

REPORT INFORMATION
  Report Type: 
  Country: None (occurrence: None)
  Receive Date: 20050929
  Receipt Date: 20050920
  Transmission Date: 20060218
  Serious: Yes (Other)
  Sender: FDA-Public Use
  Company Number: HQWYE437225JUL05

PATIENT
  Age: 44 Year
  Sex: Female
  Weight: 65.83 kg

DRUGS (4)
  1. EFFEXOR XR [Suspect]
     Indication: SOCIAL PHOBIA
     Dosage: 37.5 MG 1X PER 1 DAY, ORAL
     Route: 048
     Dates: start: 20041001, end: 20041001
  2. EFFEXOR XR [Suspect]
     Indication: SOCIAL PHOBIA
     Dosage: 37.5 MG 1X PER 1 DAY, ORAL
     Route: 048
     Dates: start: 20041001, end: 20050601
  3. EFFEXOR XR [Suspect]
     Indication: SOCIAL PHOBIA
     Dosage: 37.5 MG 1X PER 1 DAY, ORAL
     Route: 048
     Dates: start: 20050701
  4. LEVOXYL [Concomitant]

REACTIONS (7)
  - DRUG WITHDRAWAL SYNDROME [None]
  - INSOMNIA [None]
  - MIGRAINE [None]
  - PAIN IN EXTREMITY [None]
  - SUICIDAL IDEATION [None]
  - THINKING ABNORMAL [None]
  - TREATMENT NONCOMPLIANCE [None]
